FAERS Safety Report 9244642 (Version 1)
Quarter: 2013Q1

REPORT INFORMATION
  Report Type: Spontaneous
  Country: US (occurrence: None)
  Receive Date: 20121123
  Receipt Date: 20121123
  Transmission Date: 20140127
  Serious: No
  Sender: FDA-Public Use
  Company Number: 362538

PATIENT
  Age: 60 Year
  Sex: Male

DRUGS (3)
  1. LEVEMIR FLEXPEN [Suspect]
     Indication: TYPE 2 DIABETES MELLITUS
     Dosage: 10 UNITS, SUBCUTANEOUS
     Route: 058
     Dates: start: 20120920, end: 20121004
  2. NOVOLOG FLEXPEN (INSULIN ASPART) SOLUTION FOR INJECTION, 100U/ML [Suspect]
     Dosage: SLIDING SCALE, SUBCUTANEOUS
     Route: 058
     Dates: start: 20120920, end: 20121004
  3. VICTOZA (LIRAGLUTIDE) SOLUTION FOR INJECTION, 6MG/ML [Suspect]
     Dosage: 1.2 MG QD, SUBCUTANEOUS
     Route: 058
     Dates: start: 20120920, end: 20121004

REACTIONS (1)
  - Blood glucose increased [None]
